FAERS Safety Report 25467318 (Version 1)
Quarter: 2025Q2

REPORT INFORMATION
  Report Type: Report from Study
  Country: US (occurrence: US)
  Receive Date: 20250623
  Receipt Date: 20250623
  Transmission Date: 20250717
  Serious: Yes (Hospitalization)
  Sender: BIOGEN
  Company Number: US-BIOGEN-2025BI01313865

PATIENT
  Age: 67 Year
  Sex: Female

DRUGS (1)
  1. VUMERITY [Suspect]
     Active Substance: DIROXIMEL FUMARATE
     Indication: Multiple sclerosis
     Route: 050
     Dates: start: 202406, end: 202506

REACTIONS (2)
  - Intervertebral disc protrusion [Unknown]
  - Red blood cell count decreased [Unknown]

NARRATIVE: CASE EVENT DATE: 20250601
